FAERS Safety Report 18706280 (Version 9)
Quarter: 2022Q4

REPORT INFORMATION
  Report Type: Report from Study
  Country: US (occurrence: US)
  Receive Date: 20210106
  Receipt Date: 20221205
  Transmission Date: 20230113
  Serious: Yes (Other)
  Sender: FDA-Public Use
  Company Number: US-MYLANLABS-2020M1106917

PATIENT
  Age: 60 Year
  Sex: Female
  Weight: 73.48 kg

DRUGS (6)
  1. GLATIRAMER ACETATE [Suspect]
     Active Substance: GLATIRAMER ACETATE
     Indication: Relapsing-remitting multiple sclerosis
     Dosage: 40 MILLIGRAM, 3XW
     Route: 058
     Dates: start: 20201221
  2. GLATIRAMER ACETATE [Suspect]
     Active Substance: GLATIRAMER ACETATE
     Dosage: 40 MILLIGRAM, 3XW
     Route: 058
  3. GLATIRAMER ACETATE [Suspect]
     Active Substance: GLATIRAMER ACETATE
     Dosage: 40 MILLIGRAM, 3XW
     Route: 058
  4. DEVICE [Suspect]
     Active Substance: DEVICE
     Indication: Relapsing-remitting multiple sclerosis
     Dosage: UNK
     Route: 065
  5. GABAPENTIN [Concomitant]
     Active Substance: GABAPENTIN
     Dosage: UNK
     Route: 065
  6. VILAZODONE [Concomitant]
     Active Substance: VILAZODONE
     Dosage: UNK
     Route: 065

REACTIONS (14)
  - Drug ineffective [Unknown]
  - Freezing phenomenon [Recovered/Resolved]
  - Foot fracture [Unknown]
  - Hypoaesthesia [Not Recovered/Not Resolved]
  - Injection site erythema [Unknown]
  - Injection site pain [Unknown]
  - Chills [Recovered/Resolved]
  - Injection site pruritus [Unknown]
  - Injection site mass [Unknown]
  - Lack of injection site rotation [Not Recovered/Not Resolved]
  - Injection site haemorrhage [Unknown]
  - Device issue [Recovered/Resolved]
  - Product cleaning inadequate [Unknown]
  - Product dose omission issue [Unknown]

NARRATIVE: CASE EVENT DATE: 20201224
